FAERS Safety Report 24271423 (Version 1)
Quarter: 2024Q3

REPORT INFORMATION
  Report Type: Spontaneous
  Country: US (occurrence: US)
  Receive Date: 20240901
  Receipt Date: 20240901
  Transmission Date: 20241017
  Serious: Yes (Other)
  Sender: ARGENX BVBA
  Company Number: US-ARGENX-2024-ARGX-US005456

PATIENT

DRUGS (3)
  1. VYVGART HYTRULO [Suspect]
     Active Substance: EFGARTIGIMOD ALFA\HYALURONIDASE-QVFC
     Indication: Myasthenia gravis
     Dosage: UNK, 1/WEEK, ONE SUBCUTANEOUS INJECTION PER WEEK FOR FOUR WEEKS
     Route: 058
  2. PREDNISONE [Suspect]
     Active Substance: PREDNISONE
     Indication: Product used for unknown indication
     Dosage: 60 UNITS UNKNOWN
     Route: 065
  3. PREDNISONE [Suspect]
     Active Substance: PREDNISONE
     Dosage: 40 UNITS UNKNOWN, TAPER
     Route: 065

REACTIONS (2)
  - Type 2 diabetes mellitus [Unknown]
  - Therapy interrupted [Unknown]
